FAERS Safety Report 4619472-2 (Version None)
Quarter: 2005Q1

REPORT INFORMATION
  Report Type: 
  Country: None (occurrence: None)
  Receive Date: 20050325
  Receipt Date: 20050317
  Transmission Date: 20050727
  Serious: Yes (Other)
  Sender: FDA-Public Use
  Company Number: US-JNJFOC-20050305415

PATIENT
  Age: 42 Year
  Sex: Female
  Weight: 86.18 kg

DRUGS (3)
  1. ORTHO EVRA [Suspect]
     Indication: CONTRACEPTION
     Route: 062
     Dates: start: 20050313
  2. BENTYL [Concomitant]
     Indication: IRRITABLE BOWEL SYNDROME
  3. ALBUTEROL [Concomitant]
     Indication: ASTHMA
     Route: 065

REACTIONS (4)
  - BONE PAIN [None]
  - CHEST PAIN [None]
  - HYPOAESTHESIA [None]
  - PAIN [None]
